FAERS Safety Report 5230415-3 (Version None)
Quarter: 2007Q1

REPORT INFORMATION
  Report Type: 
  Country: None (occurrence: None)
  Receive Date: 20070206
  Receipt Date: 20070123
  Transmission Date: 20070707
  Serious: Yes (Hospitalization, Other)
  Sender: FDA-Public Use
  Company Number: US-ELI_LILLY_AND_COMPANY-US200612000859

PATIENT
  Age: 79 Year
  Sex: Female
  Weight: 60.77 kg

DRUGS (20)
  1. FORTEO [Suspect]
     Indication: OSTEOPOROSIS
     Dosage: 20 UG, DAILY (1/D)
     Dates: start: 20060501, end: 20061202
  2. FORTEO [Suspect]
     Dosage: 20 UG, QOD
     Dates: start: 20061226
  3. LASIX [Concomitant]
     Indication: OEDEMA
  4. POTASSIUM ACETATE [Concomitant]
  5. ZAROXOLYN [Concomitant]
  6. OXYCONTIN [Concomitant]
  7. LISINOPRIL [Concomitant]
  8. OXYCODONE HCL [Concomitant]
  9. FOLIC ACID [Concomitant]
  10. PRILOSEC [Concomitant]
  11. FENTANYL TRANSDERMAL SYSTEM [Concomitant]
  12. SENNA [Concomitant]
  13. COLACE [Concomitant]
  14. AGGRENOX [Concomitant]
  15. SYNTHROID [Concomitant]
  16. LOPRESSOR [Concomitant]
  17. DILANTIN [Concomitant]
  18. VITAMIN D [Concomitant]
  19. MECLIZINE [Concomitant]
  20. CALCIUM [Concomitant]

REACTIONS (2)
  - HYPERCALCAEMIA [None]
  - HYPOKALAEMIA [None]
